FAERS Safety Report 17223780 (Version 2)
Quarter: 2020Q1

REPORT INFORMATION
  Report Type: Spontaneous
  Country: FR (occurrence: FR)
  Receive Date: 20200102
  Receipt Date: 20200215
  Transmission Date: 20200409
  Serious: Yes (Death, Hospitalization)
  Sender: FDA-Public Use
  Company Number: FR-ACCORD-168124

PATIENT
  Age: 60 Year
  Sex: Female
  Weight: 48 kg

DRUGS (3)
  1. AVASTIN [Suspect]
     Active Substance: BEVACIZUMAB
     Indication: ADENOCARCINOMA OF COLON
     Route: 041
     Dates: start: 20191112, end: 20191112
  2. OXALIPLATIN ACCORD [Suspect]
     Active Substance: OXALIPLATIN
     Indication: ADENOCARCINOMA OF COLON
     Route: 041
     Dates: start: 20191112, end: 20191112
  3. FLUOROURACIL ACCORD [Suspect]
     Active Substance: FLUOROURACIL
     Indication: ADENOCARCINOMA OF COLON
     Route: 041
     Dates: start: 20191112, end: 20191112

REACTIONS (3)
  - Hypertension [Not Recovered/Not Resolved]
  - Acute pulmonary oedema [Fatal]
  - Respiratory distress [Fatal]

NARRATIVE: CASE EVENT DATE: 20191128
